FAERS Safety Report 21227982 (Version 3)
Quarter: 2022Q3

REPORT INFORMATION
  Report Type: Report from Study
  Country: US (occurrence: US)
  Receive Date: 20220818
  Receipt Date: 20220917
  Transmission Date: 20221027
  Serious: Yes (Hospitalization)
  Sender: FDA-Public Use
  Company Number: US-UNITED THERAPEUTICS-UNT-2022-018321

PATIENT
  Age: 22 Year
  Sex: Female
  Weight: 70.2 kg

DRUGS (18)
  1. UNITUXIN [Suspect]
     Active Substance: DINUTUXIMAB
     Indication: Neuroblastoma recurrent
     Dosage: 31.85 MG, CYCLICAL (CYCLE 1)
     Route: 041
     Dates: start: 20220803, end: 20220807
  2. UNITUXIN [Suspect]
     Active Substance: DINUTUXIMAB
     Dosage: 31.85 MG, CYCLICAL (CYCLE 2)
     Route: 041
     Dates: start: 20220825, end: 20220828
  3. IOBENGUANE I-131 [Suspect]
     Active Substance: IOBENGUANE I-131
     Indication: Neuroblastoma recurrent
     Dosage: 1188.9 MCI, ONCE
     Route: 041
     Dates: start: 20220728, end: 20220728
  4. IOBENGUANE I-131 [Suspect]
     Active Substance: IOBENGUANE I-131
     Dosage: UNK
     Route: 041
  5. IOBENGUANE I-131 [Suspect]
     Active Substance: IOBENGUANE I-131
     Dosage: UNK
     Route: 041
  6. IOBENGUANE I-131 [Suspect]
     Active Substance: IOBENGUANE I-131
     Dosage: UNK
     Route: 041
  7. IOBENGUANE I-131 [Suspect]
     Active Substance: IOBENGUANE I-131
     Dosage: UNK
     Route: 041
  8. VORINOSTAT [Suspect]
     Active Substance: VORINOSTAT
     Indication: Neuroblastoma recurrent
     Dosage: 300 MG, QD
     Route: 048
     Dates: start: 20220727, end: 20220809
  9. VORINOSTAT [Suspect]
     Active Substance: VORINOSTAT
     Dosage: UNK
     Route: 048
  10. GRANULOCYTE-MACROPHAGE COLONY-STIMULATING FACTOR [Suspect]
     Active Substance: GRANULOCYTE-MACROPHAGE COLONY-STIMULATING FACTOR
     Indication: Neuroblastoma recurrent
     Dosage: 455 MCG, CYCLICAL (CYCLE 1)
     Route: 058
     Dates: start: 20220803, end: 20220812
  11. GRANULOCYTE-MACROPHAGE COLONY-STIMULATING FACTOR [Suspect]
     Active Substance: GRANULOCYTE-MACROPHAGE COLONY-STIMULATING FACTOR
     Dosage: 450 MCG, CYCLICAL (CYCLE 2)
     Route: 058
     Dates: start: 20220824, end: 20220903
  12. GRANULOCYTE-MACROPHAGE COLONY-STIMULATING FACTOR [Suspect]
     Active Substance: GRANULOCYTE-MACROPHAGE COLONY-STIMULATING FACTOR
     Dosage: UNK, CYCLICAL
     Route: 058
  13. SSKI [Suspect]
     Active Substance: POTASSIUM IODIDE
     Indication: Neuroblastoma recurrent
     Dosage: UNK
     Route: 065
  14. ACYCLOVIR [Concomitant]
     Active Substance: ACYCLOVIR
     Indication: Prophylaxis
     Dosage: 400 MG, BID
     Route: 048
     Dates: start: 20220623
  15. BACTRIM [Concomitant]
     Active Substance: SULFAMETHOXAZOLE\TRIMETHOPRIM
     Indication: Pneumocystis jirovecii pneumonia
     Dosage: 160 MG, BID (SATURDAY AND SUNDAY)
     Route: 065
     Dates: start: 20220625
  16. HYDROXYZINE [Concomitant]
     Active Substance: HYDROXYZINE HYDROCHLORIDE
     Indication: Nausea
     Dosage: 25 MG, Q6H (PRN)
     Route: 048
     Dates: start: 20220728
  17. HYDROXYZINE [Concomitant]
     Active Substance: HYDROXYZINE HYDROCHLORIDE
     Indication: Vomiting
  18. LANSOPRAZOLE [Concomitant]
     Active Substance: LANSOPRAZOLE
     Indication: Prophylaxis
     Dosage: 30 MG, BID
     Route: 048
     Dates: start: 20220630, end: 20220906

REACTIONS (4)
  - Dehydration [Not Recovered/Not Resolved]
  - Hypokalaemia [Recovered/Resolved]
  - Nausea [Not Recovered/Not Resolved]
  - Vomiting [Not Recovered/Not Resolved]

NARRATIVE: CASE EVENT DATE: 20220809
